FAERS Safety Report 14472182 (Version 1)
Quarter: 2018Q1

REPORT INFORMATION
  Report Type: Spontaneous
  Country: NL (occurrence: NL)
  Receive Date: 20180131
  Receipt Date: 20180131
  Transmission Date: 20180509
  Serious: Yes (Other)
  Sender: FDA-Public Use
  Company Number: NL-AMGEN-NLDSP2018013505

PATIENT
  Age: 54 Year
  Sex: Male

DRUGS (2)
  1. PROLIA [Concomitant]
     Active Substance: DENOSUMAB
     Indication: BONE DECALCIFICATION
     Dosage: 1 DF, EVERY 6 MONTHS
  2. ENBREL [Suspect]
     Active Substance: ETANERCEPT
     Indication: PRODUCT USED FOR UNKNOWN INDICATION
     Dosage: UNK, EVERY 2 WEEKS
     Route: 065

REACTIONS (4)
  - Product use issue [Unknown]
  - Spinal compression fracture [Unknown]
  - Bone decalcification [Unknown]
  - Neuralgia [Unknown]
